FAERS Safety Report 7237982-9 (Version None)
Quarter: 2011Q1

REPORT INFORMATION
  Report Type: 
  Country: None (occurrence: None)
  Receive Date: 20110121
  Receipt Date: 20110112
  Transmission Date: 20110831
  Serious: Yes (Death)
  Sender: FDA-Public Use
  Company Number: A0748590A

PATIENT
  Age: 58 Year
  Sex: Female

DRUGS (5)
  1. ADRIAMYCIN PFS [Concomitant]
  2. HERCEPTIN [Concomitant]
  3. TAXOL [Concomitant]
  4. TYKERB [Suspect]
     Indication: BREAST CANCER
     Dosage: 1TAB FIVE TIMES PER DAY
     Route: 048
  5. TAXOTERE [Concomitant]

REACTIONS (2)
  - ADVERSE REACTION [None]
  - DEATH [None]
